FAERS Safety Report 21133962 (Version 1)
Quarter: 2022Q3

REPORT INFORMATION
  Report Type: Spontaneous
  Country: US (occurrence: US)
  Receive Date: 20220726
  Receipt Date: 20220726
  Transmission Date: 20221027
  Serious: No
  Sender: FDA-Public Use
  Company Number: US-OYSTER POINT PHARMA, INC.-2022OYS00591

PATIENT
  Sex: Female

DRUGS (1)
  1. TYRVAYA [Suspect]
     Active Substance: VARENICLINE TARTRATE
     Indication: Dry eye
     Dosage: 1 SPRAY INTO EACH NOSTRIL, 2X/DAY
     Route: 045
     Dates: start: 20220527, end: 20220529

REACTIONS (4)
  - Eye haemorrhage [Recovering/Resolving]
  - Ocular hyperaemia [Recovering/Resolving]
  - Ocular icterus [Recovering/Resolving]
  - Scleral discolouration [Recovering/Resolving]

NARRATIVE: CASE EVENT DATE: 20220501
